FAERS Safety Report 4761759-7 (Version None)
Quarter: 2005Q3

REPORT INFORMATION
  Report Type: 
  Country: None (occurrence: None)
  Receive Date: 20050906
  Receipt Date: 20050826
  Transmission Date: 20060218
  Serious: Yes (Other)
  Sender: FDA-Public Use
  Company Number: US-BRISTOL-MYERS SQUIBB COMPANY-13091517

PATIENT
  Age: 74 Year
  Sex: Female
  Weight: 48 kg

DRUGS (2)
  1. COUMADIN [Suspect]
     Dosage: ON 5MG QD EXCEPT SATURDAY; RX STOPPED FOR FEW DAYS; MD WANTS RESTART, BUT UNSURE IF TAKING NOW.
     Route: 048
  2. TOPROL-XL [Concomitant]

REACTIONS (2)
  - BLINDNESS UNILATERAL [None]
  - EYE HAEMORRHAGE [None]
